FAERS Safety Report 5902596-7 (Version None)
Quarter: 2008Q3

REPORT INFORMATION
  Report Type: 
  Country: None (occurrence: None)
  Receive Date: 20080924
  Receipt Date: 20070413
  Transmission Date: 20090109
  Serious: Yes (Hospitalization)
  Sender: FDA-Public Use
  Company Number: 2005-00644FE

PATIENT
  Age: 6 Year
  Sex: Male

DRUGS (3)
  1. MINIRIN [Suspect]
     Indication: ENURESIS
     Dosage: 60 MCG/40 MCG IN
     Dates: start: 20050215, end: 20050601
  2. MINIRIN [Suspect]
     Indication: ENURESIS
     Dosage: 60 MCG/40 MCG IN
     Dates: start: 20050601, end: 20080709
  3. OXYBUTYNIN CHLORIDE [Concomitant]

REACTIONS (16)
  - ABDOMINAL PAIN [None]
  - BRAIN OEDEMA [None]
  - CLONUS [None]
  - COMA [None]
  - CONVULSION [None]
  - DRUG INEFFECTIVE [None]
  - HYPERTONIC BLADDER [None]
  - HYPONATRAEMIA [None]
  - INCORRECT DOSE ADMINISTERED [None]
  - LOSS OF CONSCIOUSNESS [None]
  - MALAISE [None]
  - MEDICATION ERROR [None]
  - NASAL DISCOMFORT [None]
  - PNEUMONIA ASPIRATION [None]
  - VOMITING [None]
  - WATER INTOXICATION [None]
